FAERS Safety Report 14689452 (Version 1)
Quarter: 2018Q1

REPORT INFORMATION
  Report Type: Spontaneous
  Country: DE (occurrence: DE)
  Receive Date: 20180328
  Receipt Date: 20180328
  Transmission Date: 20180509
  Serious: Yes (Congenital Anomaly, Other)
  Sender: FDA-Public Use
  Company Number: DE-ALLERGAN-1815837US

PATIENT
  Age: 1 Day
  Sex: Male
  Weight: 3.14 kg

DRUGS (4)
  1. QUETIAPINE. [Suspect]
     Active Substance: QUETIAPINE
     Indication: MATERNAL EXPOSURE TIMING UNSPECIFIED
     Dosage: 600 MG, QD
     Route: 064
     Dates: start: 20161205, end: 20170822
  2. L-THYROXIN [Concomitant]
     Active Substance: LEVOTHYROXINE SODIUM
     Indication: MATERNAL EXPOSURE TIMING UNSPECIFIED
     Dosage: 150 ?G, BI-WEEKLY
     Route: 064
     Dates: start: 20161205, end: 20170822
  3. PRESINOL [Concomitant]
     Active Substance: METHYLDOPA
     Indication: MATERNAL EXPOSURE TIMING UNSPECIFIED
     Dosage: UNK
     Route: 064
  4. CITALOPRAM HYDROBROMIDE - BP [Suspect]
     Active Substance: CITALOPRAM HYDROBROMIDE
     Indication: MATERNAL EXPOSURE TIMING UNSPECIFIED
     Dosage: 30 MG, QD
     Route: 064
     Dates: start: 20161205, end: 20170822

REACTIONS (6)
  - Ventricular septal defect [Unknown]
  - Coarctation of the aorta [Unknown]
  - Agitation neonatal [Recovered/Resolved]
  - Atrial septal defect [Unknown]
  - Respiratory disorder neonatal [Recovered/Resolved]
  - Foetal exposure during pregnancy [Unknown]

NARRATIVE: CASE EVENT DATE: 20170822
